FAERS Safety Report 11135876 (Version 2)
Quarter: 2016Q1

REPORT INFORMATION
  Report Type: Report from Study
  Country: US (occurrence: US)
  Receive Date: 20150526
  Receipt Date: 20160325
  Transmission Date: 20160525
  Serious: Yes (Other)
  Sender: FDA-Public Use
  Company Number: US-MALLINCKRODT-T201501901

PATIENT
  Age: 53 Year
  Sex: Male

DRUGS (1)
  1. REPOSITORY CORTICOTROPIN INJECTION [Suspect]
     Active Substance: CORTICOTROPIN
     Indication: PULMONARY SARCOIDOSIS
     Dosage: 80 UNITS TWICE WEEKLY
     Route: 058
     Dates: start: 20141201

REACTIONS (5)
  - Dry skin [Unknown]
  - Liver sarcoidosis [Not Recovered/Not Resolved]
  - Skin exfoliation [Unknown]
  - Sarcoidosis [Not Recovered/Not Resolved]
  - Skin discolouration [Unknown]

NARRATIVE: CASE EVENT DATE: 20160310
